FAERS Safety Report 25087861 (Version 1)
Quarter: 2025Q1

REPORT INFORMATION
  Report Type: Report from Study
  Country: US (occurrence: US)
  Receive Date: 20250318
  Receipt Date: 20250318
  Transmission Date: 20250409
  Serious: Yes (Hospitalization)
  Sender: RECORDATI
  Company Number: US-ORPHANEU-2025001660

PATIENT
  Age: 67 Year
  Sex: Female
  Weight: 76.19 kg

DRUGS (15)
  1. ISTURISA [Suspect]
     Active Substance: OSILODROSTAT PHOSPHATE
     Indication: Cushing^s syndrome
     Dosage: 2 MILLIGRAM, BID
     Route: 048
     Dates: end: 202502
  2. ASCORBIC ACID [Concomitant]
     Active Substance: ASCORBIC ACID
     Indication: Product used for unknown indication
     Dosage: 500 MILLIGRAM, QD (ORAL TABLET 500 MG)
     Route: 048
     Dates: start: 20250102
  3. Bisacodyl delayed release [Concomitant]
     Indication: Product used for unknown indication
     Dosage: 5 MILLIGRAM, QD (BISACODYL EC ORAL TABLET DELAYED RELEASE)
     Route: 048
     Dates: start: 20250102
  4. CARVEDILOL [Concomitant]
     Active Substance: CARVEDILOL
     Indication: Product used for unknown indication
     Dosage: 6.25 MILLIGRAM, BID (TABLET 6.25 MG)
     Route: 048
     Dates: start: 20250102
  5. FOLIC ACID [Concomitant]
     Active Substance: FOLIC ACID
     Indication: Product used for unknown indication
     Dosage: 1 MILLIGRAM, QD (TABLET 1MG)
     Route: 048
     Dates: start: 20250102
  6. GABAPENTIN [Concomitant]
     Active Substance: GABAPENTIN
     Indication: Product used for unknown indication
     Dosage: 300 MILLIGRAM, QD AT BEDTIME (CAPSULE 300 MG)
     Route: 048
     Dates: start: 20250102
  7. INSULIN GLARGINE [Concomitant]
     Active Substance: INSULIN GLARGINE
     Indication: Product used for unknown indication
     Dosage: 100UNITS/ML DAILY AT BEDTIME (SUBCUTANEOUS SOLUTION)
     Route: 058
     Dates: start: 20250102
  8. INSULIN LISPRO [Concomitant]
     Active Substance: INSULIN LISPRO
     Indication: Product used for unknown indication
     Dosage: 100UNITS/ML, TID (INJECTION SOLUTION)
     Dates: start: 20250102
  9. LEVOTHYROXINE SODIUM [Concomitant]
     Active Substance: LEVOTHYROXINE SODIUM
     Indication: Product used for unknown indication
     Dosage: 112 MICROGRAM, QD (ORAL TABLET 11)
     Route: 048
     Dates: start: 20250102
  10. LISINOPRIL [Concomitant]
     Active Substance: LISINOPRIL
     Indication: Product used for unknown indication
     Dosage: 10 MILLIGRAM, QD (TABLET 10 MG)
     Route: 048
     Dates: start: 20250102
  11. METHOTREXATE SODIUM [Concomitant]
     Active Substance: METHOTREXATE SODIUM
     Indication: Product used for unknown indication
     Dosage: 20 MILLIGRAM, QW (ORAL TABLET 2.5)
     Route: 048
     Dates: start: 20250102
  12. CALCIUM CARBONATE\ERGOCALCIFEROL [Concomitant]
     Active Substance: CALCIUM CARBONATE\ERGOCALCIFEROL
     Indication: Product used for unknown indication
     Dosage: 500-10 WITH UNSPECIFIED UNITS, QD (ORAL TABLET)
     Route: 048
     Dates: start: 20250102
  13. SENNA PLUS [Concomitant]
     Active Substance: DOCUSATE SODIUM\SENNOSIDES\SENNOSIDES A AND B
     Indication: Product used for unknown indication
     Route: 048
     Dates: start: 20250102
  14. SERTRALINE HYDROCHLORIDE [Concomitant]
     Active Substance: SERTRALINE HYDROCHLORIDE
     Indication: Product used for unknown indication
     Dosage: 100 MILLIGRAM, QD (TABLET 100 MG)
     Route: 048
     Dates: start: 20250102
  15. SPIRONOLACTONE [Concomitant]
     Active Substance: SPIRONOLACTONE
     Indication: Product used for unknown indication
     Dosage: 100 MILLIGRAM, QD (TABLET 100 MG)
     Route: 048
     Dates: start: 20250102

REACTIONS (3)
  - Rectal haemorrhage [Recovered/Resolved]
  - Hypotension [Recovered/Resolved]
  - Diarrhoea [Recovered/Resolved]

NARRATIVE: CASE EVENT DATE: 20250201
